FAERS Safety Report 24917211 (Version 1)
Quarter: 2025Q1

REPORT INFORMATION
  Report Type: Spontaneous
  Country: US (occurrence: None)
  Receive Date: 20250202
  Receipt Date: 20250202
  Transmission Date: 20250408
  Serious: Yes (Disabling)
  Sender: FDA-CTU
  Company Number: None

PATIENT
  Age: 30 Year
  Sex: Male
  Weight: 85.5 kg

DRUGS (3)
  1. BAXDELA [Suspect]
     Active Substance: DELAFLOXACIN MEGLUMINE
     Indication: Infection
     Dosage: 1 TABLET TWICE A DAY ORAL ?
     Route: 048
  2. DOXYCYCLINE [Suspect]
     Active Substance: DOXYCYCLINE
  3. AZITHROMYCIN [Suspect]
     Active Substance: AZITHROMYCIN

REACTIONS (2)
  - Drug ineffective [None]
  - Adverse drug reaction [None]

NARRATIVE: CASE EVENT DATE: 20250201
